FAERS Safety Report 19755110 (Version 1)
Quarter: 2021Q3

REPORT INFORMATION
  Report Type: Spontaneous
  Country: DE (occurrence: DE)
  Receive Date: 20210827
  Receipt Date: 20210827
  Transmission Date: 20211014
  Serious: Yes (Other)
  Sender: FDA-Public Use
  Company Number: DE-TEVA-2021-DE-1945287

PATIENT
  Sex: Female

DRUGS (4)
  1. JAKAVI [Suspect]
     Active Substance: RUXOLITINIB
     Dosage: 20 MILLIGRAM DAILY; 10 MG, BID
     Route: 065
     Dates: start: 2011
  2. JAKAVI [Suspect]
     Active Substance: RUXOLITINIB
     Indication: MYELOFIBROSIS
     Dosage: 5 MG , THERAPY END DATE : ASKU
     Route: 065
     Dates: start: 2011
  3. JAKAVI [Suspect]
     Active Substance: RUXOLITINIB
     Dosage: 10 MILLIGRAM DAILY; 5 MG, BID , THERAPY START DATE AND END DATE : ASKU
     Route: 065
  4. VITAMIN B12 [Suspect]
     Active Substance: CYANOCOBALAMIN
     Indication: VITAMIN B12 DEFICIENCY
     Dosage: UNK , THERAPY END DATE : ASKU
     Route: 065
     Dates: start: 20140804

REACTIONS (5)
  - Splenomegaly [Unknown]
  - Spleen disorder [Unknown]
  - Vitamin B12 deficiency [Unknown]
  - Thrombocytopenia [Unknown]
  - Hepatomegaly [Unknown]

NARRATIVE: CASE EVENT DATE: 20210803
